FAERS Safety Report 6508659-X (Version None)
Quarter: 2009Q4

REPORT INFORMATION
  Report Type: 
  Country: None (occurrence: None)
  Receive Date: 20091221
  Receipt Date: 20090722
  Transmission Date: 20100525
  Serious: No
  Sender: FDA-Public Use
  Company Number: US-ASTRAZENECA-2009SE05876

PATIENT
  Sex: Female

DRUGS (3)
  1. CRESTOR [Suspect]
     Indication: BLOOD CHOLESTEROL INCREASED
     Route: 048
  2. ARIMIDEX [Concomitant]
  3. SYNTHROID [Concomitant]

REACTIONS (2)
  - POLLAKIURIA [None]
  - URINE OUTPUT INCREASED [None]
